FAERS Safety Report 10497836 (Version 1)
Quarter: 2014Q4

REPORT INFORMATION
  Report Type: Spontaneous
  Country: US (occurrence: None)
  Receive Date: 20141003
  Receipt Date: 20141003
  Transmission Date: 20150528
  Serious: No
  Sender: FDA-Public Use
  Company Number: None

PATIENT
  Age: 80 Year
  Sex: Female

DRUGS (12)
  1. SPIRONOLACTONE. [Concomitant]
     Active Substance: SPIRONOLACTONE
  2. WARFARIN [Concomitant]
     Active Substance: WARFARIN
  3. EYE DROPS [Concomitant]
     Active Substance: TETRAHYDROZOLINE HYDROCHLORIDE
  4. BROMERON [Concomitant]
  5. LASIX [Concomitant]
     Active Substance: FUROSEMIDE
  6. FLUCINONIDE [Concomitant]
  7. ACETAMINOPHEN. [Concomitant]
     Active Substance: ACETAMINOPHEN
  8. CALCIUM + D [Concomitant]
  9. IMBRUVICA [Suspect]
     Active Substance: IBRUTINIB
     Indication: SKIN CANCER
     Route: 048
     Dates: start: 20140605
  10. ALLERGRA [Concomitant]
  11. MULTIVITAMIN [Concomitant]
     Active Substance: VITAMINS
  12. IMBRUVICA [Suspect]
     Active Substance: IBRUTINIB
     Indication: SQUAMOUS CELL CARCINOMA OF SKIN
     Route: 048
     Dates: start: 20140605

REACTIONS (2)
  - Breast cancer [None]
  - Pulmonary oedema [None]

NARRATIVE: CASE EVENT DATE: 20140922
